FAERS Safety Report 8246743-3 (Version None)
Quarter: 2012Q1

REPORT INFORMATION
  Report Type: 
  Country: None (occurrence: None)
  Receive Date: 20120330
  Receipt Date: 20120327
  Transmission Date: 20120608
  Serious: Yes (Other)
  Sender: FDA-Public Use
  Company Number: US-PFIZER INC-2012062577

PATIENT
  Sex: Female

DRUGS (2)
  1. SUTENT [Suspect]
     Indication: RENAL CANCER
  2. SUTENT [Suspect]
     Indication: METASTATIC NEOPLASM
     Dosage: 50 MG, 1X/DAY, 4 WEEKS ON, 1 WEEK OFF
     Route: 048
     Dates: start: 20120125, end: 20120307

REACTIONS (4)
  - OEDEMA PERIPHERAL [None]
  - LOCAL SWELLING [None]
  - NECROSIS [None]
  - PALMAR-PLANTAR ERYTHRODYSAESTHESIA SYNDROME [None]
